FAERS Safety Report 19839468 (Version 1)
Quarter: 2021Q3

REPORT INFORMATION
  Report Type: Spontaneous
  Country: FR (occurrence: FR)
  Receive Date: 20210915
  Receipt Date: 20210915
  Transmission Date: 20211014
  Serious: Yes (Other)
  Sender: FDA-Public Use
  Company Number: FR-TEVA-2021-FR-1955154

PATIENT
  Sex: Female

DRUGS (2)
  1. ANASTROZOLE TEVA 1 MG [Suspect]
     Active Substance: ANASTROZOLE
     Indication: BREAST CANCER
     Dosage: TWO YEARS AGO
     Route: 048
  2. AMLODIPINE [Suspect]
     Active Substance: AMLODIPINE BESYLATE
     Dosage: 10 MILLIGRAM DAILY; EIGHTEEN MONTHS AGO
     Route: 048

REACTIONS (2)
  - Blood urine present [Unknown]
  - Nephrolithiasis [Unknown]
